FAERS Safety Report 6782634-2 (Version None)
Quarter: 2010Q2

REPORT INFORMATION
  Report Type: 
  Country: None (occurrence: None)
  Receive Date: 20100621
  Receipt Date: 20100616
  Transmission Date: 20101027
  Serious: Yes (Other)
  Sender: FDA-Public Use
  Company Number: US-BRISTOL-MYERS SQUIBB COMPANY-15155286

PATIENT
  Age: 85 Year
  Sex: Male

DRUGS (1)
  1. COUMADIN [Suspect]
     Dosage: 1DF= 7.5MG FOR 6D AND 3.75MG QD FOR 1 DAY FOR YEARS

REACTIONS (1)
  - PULMONARY EMBOLISM [None]
